FAERS Safety Report 10097590 (Version 1)
Quarter: 2014Q2

REPORT INFORMATION
  Report Type: Spontaneous
  Country: US (occurrence: US)
  Receive Date: 20140423
  Receipt Date: 20140423
  Transmission Date: 20141212
  Serious: No
  Sender: FDA-Public Use
  Company Number: US-BIOGENIDEC-2014BI033074

PATIENT
  Age: 52 Year
  Sex: Female

DRUGS (2)
  1. TECFIDERA [Suspect]
     Indication: MULTIPLE SCLEROSIS
     Route: 048
     Dates: start: 20140101, end: 20140106
  2. TECFIDERA [Suspect]
     Indication: MULTIPLE SCLEROSIS
     Route: 048
     Dates: start: 20140107, end: 20140110

REACTIONS (6)
  - Medication error [Recovered/Resolved]
  - Pyrexia [Unknown]
  - Urticaria [Unknown]
  - Flushing [Unknown]
  - Burning sensation [Unknown]
  - Pruritus [Unknown]
